FAERS Safety Report 7352521-X (Version None)
Quarter: 2011Q1

REPORT INFORMATION
  Report Type: 
  Country: None (occurrence: None)
  Receive Date: 20110309
  Receipt Date: 20110309
  Transmission Date: 20110831
  Serious: Yes (Hospitalization)
  Sender: FDA-Public Use
  Company Number: None

PATIENT
  Age: 75 Year
  Sex: Female

DRUGS (3)
  1. ERLOTINIB HYDROCHLORIDE [Suspect]
  2. GEMCITABINE [Suspect]
  3. ASCORBIC ACID [Suspect]
     Indication: PANCREATIC CARCINOMA METASTATIC
     Dosage: 75G/INFUSION
     Route: 042
     Dates: start: 20100826, end: 20101007

REACTIONS (1)
  - PULMONARY EMBOLISM [None]
